FAERS Safety Report 9784951 (Version 1)
Quarter: 2013Q4

REPORT INFORMATION
  Report Type: Spontaneous
  Country: BE (occurrence: BE)
  Receive Date: 20131227
  Receipt Date: 20131227
  Transmission Date: 20140711
  Serious: Yes (Other)
  Sender: FDA-Public Use
  Company Number: BE-ASTRAZENECA-2013SE92389

PATIENT
  Age: 83 Year
  Sex: Female

DRUGS (4)
  1. SEROQUEL XR [Suspect]
     Indication: AGITATION
     Route: 048
  2. SEROQUEL XR [Interacting]
     Indication: AGITATION
     Dosage: TWO TIMES A DAY, ONCE AT MORNING AND ONCE AT NIGHT
     Route: 048
  3. SEROQUEL XR [Interacting]
     Indication: AGITATION
     Route: 048
  4. MATRIFEN [Interacting]
     Dosage: 2.5 EVERY 3 RD DAY
     Route: 065

REACTIONS (3)
  - Drug interaction [Unknown]
  - Blood pressure decreased [Unknown]
  - Syncope [Unknown]
